FAERS Safety Report 6936378-4 (Version None)
Quarter: 2010Q3

REPORT INFORMATION
  Report Type: 
  Country: None (occurrence: None)
  Receive Date: 20100823
  Receipt Date: 20100812
  Transmission Date: 20110219
  Serious: Yes (Death)
  Sender: FDA-Public Use
  Company Number: GXKR2010DE09042

PATIENT
  Age: 59 Year
  Sex: Male

DRUGS (2)
  1. PREDNISOLONE (NGX) [Suspect]
     Indication: CHRONIC GRAFT VERSUS HOST DISEASE
     Dosage: 1 MG/KG, UNK
     Route: 065
  2. ITRACONAZOLE [Suspect]
     Indication: FUNGAL INFECTION
     Dosage: UNK
     Route: 048
     Dates: start: 20051101

REACTIONS (5)
  - HAEMOPTYSIS [None]
  - LUNG INFILTRATION [None]
  - PNEUMONIA [None]
  - RESPIRATORY FAILURE [None]
  - ZYGOMYCOSIS [None]
